FAERS Safety Report 6150667-5 (Version None)
Quarter: 2009Q2

REPORT INFORMATION
  Report Type: 
  Country: None (occurrence: None)
  Receive Date: 20090408
  Receipt Date: 20090408
  Transmission Date: 20091009
  Serious: No
  Sender: FDA-Public Use
  Company Number: None

PATIENT
  Age: 2 Year
  Sex: Female
  Weight: 12.7007 kg

DRUGS (1)
  1. DESONATE [Suspect]
     Indication: ECZEMA
     Dosage: THIN COATING AS NEEDED TOP
     Route: 061
     Dates: start: 20090405, end: 20090405

REACTIONS (1)
  - APPLICATION SITE DISCOLOURATION [None]
